FAERS Safety Report 6043240-0 (Version None)
Quarter: 2009Q1

REPORT INFORMATION
  Report Type: 
  Country: None (occurrence: None)
  Receive Date: 20090119
  Receipt Date: 20090112
  Transmission Date: 20090719
  Serious: Yes (Life-Threatening, Hospitalization)
  Sender: FDA-Public Use
  Company Number: GB-ELI_LILLY_AND_COMPANY-GB200804006194

PATIENT
  Sex: Female
  Weight: 61.8 kg

DRUGS (10)
  1. BYETTA [Suspect]
     Indication: TYPE 2 DIABETES MELLITUS
     Dosage: 5 UG, 2/D
     Route: 058
     Dates: start: 20080304, end: 20080304
  2. INSULIN [Concomitant]
     Indication: TYPE 2 DIABETES MELLITUS
     Dosage: UNK, UNKNOWN
     Route: 065
  3. INSULIN [Concomitant]
     Dosage: 6 UNITS PER HOUR
     Route: 042
  4. METFORMIN [Concomitant]
     Indication: DIABETES MELLITUS
     Dosage: 500 MG, UNK
     Route: 065
  5. NOVOMIX 30 [Concomitant]
     Indication: TYPE 2 DIABETES MELLITUS
     Dosage: 20 IU, EACH MORNING
     Route: 058
  6. NOVOMIX 30 [Concomitant]
     Dosage: 10 IU, EACH EVENING
     Route: 058
  7. BENDROFLUAZIDE [Concomitant]
     Indication: BLOOD PRESSURE
     Dosage: 2.5 MG, DAILY (1/D)
     Route: 048
  8. LOSARTAN POTASSIUM [Concomitant]
     Indication: BLOOD PRESSURE
     Dosage: 100 MG, DAILY (1/D)
     Route: 048
  9. RISEDRONATE SODIUM [Concomitant]
     Dosage: 35 MG, WEEKLY (1/W)
     Route: 065
  10. AMLODIPINE [Concomitant]
     Dosage: 10 MG, DAILY (1/D)
     Route: 065

REACTIONS (1)
  - DIABETIC KETOACIDOSIS [None]
